FAERS Safety Report 8231599-5 (Version None)
Quarter: 2012Q1

REPORT INFORMATION
  Report Type: 
  Country: None (occurrence: None)
  Receive Date: 20120323
  Receipt Date: 20120313
  Transmission Date: 20120608
  Serious: Yes (Other)
  Sender: FDA-Public Use
  Company Number: JP-ELI_LILLY_AND_COMPANY-JP201202006959

PATIENT
  Sex: Female
  Weight: 44 kg

DRUGS (5)
  1. ELCITONIN [Concomitant]
     Dosage: UNK, WEEKLY (1/W)
     Route: 030
     Dates: start: 20120214
  2. FORTEO [Suspect]
     Indication: OSTEOPOROTIC FRACTURE
     Dosage: 20 UG, QD
     Route: 058
     Dates: start: 20120221, end: 20120221
  3. FAMOTIDINE [Concomitant]
     Dosage: UNK
     Route: 048
     Dates: start: 20120215
  4. REBAMIPIDE [Concomitant]
     Dosage: UNK
     Route: 048
     Dates: start: 20120214
  5. DAISPAS [Concomitant]
     Dosage: UNK
     Route: 048
     Dates: start: 20120214

REACTIONS (6)
  - DIZZINESS [None]
  - HEADACHE [None]
  - MALAISE [None]
  - HYPOAESTHESIA [None]
  - NAUSEA [None]
  - HOT FLUSH [None]
